FAERS Safety Report 25933358 (Version 1)
Quarter: 2025Q4

REPORT INFORMATION
  Report Type: Spontaneous
  Country: EU (occurrence: EU)
  Receive Date: 20251017
  Receipt Date: 20251017
  Transmission Date: 20260118
  Serious: Yes (Disabling, Other)
  Sender: VELOXIS PHARMACEUTICALS
  Company Number: EU-VELOXIS PHARMACEUTICALS, INC.-2025-VEL-00867

PATIENT
  Age: 61 Year
  Sex: Female

DRUGS (4)
  1. TACROLIMUS [Suspect]
     Active Substance: TACROLIMUS
     Indication: Immunosuppressant drug therapy
     Dosage: UNK
  2. CYCLOSPORINE [Suspect]
     Active Substance: CYCLOSPORINE
     Indication: Immunosuppressant drug therapy
     Dosage: UNK
  3. MYCOPHENOLIC ACID [Suspect]
     Active Substance: MYCOPHENOLIC ACID
     Indication: Immunosuppressant drug therapy
     Dosage: UNK
  4. CINACALCET [Concomitant]
     Active Substance: CINACALCET
     Indication: Hyperparathyroidism secondary
     Dosage: 30 MILLIGRAM, QD

REACTIONS (4)
  - Bone marrow oedema [Recovered/Resolved]
  - Osteomalacia [Recovered/Resolved]
  - Vitamin D deficiency [Recovered/Resolved]
  - Thoracic vertebral fracture [Recovered/Resolved]
